FAERS Safety Report 16725905 (Version 1)
Quarter: 2019Q3

REPORT INFORMATION
  Report Type: Spontaneous
  Country: NL (occurrence: ES)
  Receive Date: 20190821
  Receipt Date: 20190821
  Transmission Date: 20191005
  Serious: Yes (Other)
  Sender: FDA-Public Use
  Company Number: ES-FRESENIUS KABI-FK201909179

PATIENT
  Age: 63 Year
  Sex: Male

DRUGS (1)
  1. PROPOFOL (MANUFACTURER UNKNOWN) [Suspect]
     Active Substance: PROPOFOL
     Indication: SURGERY
     Route: 042
     Dates: start: 20190730

REACTIONS (2)
  - Medication error [Unknown]
  - Respiratory depression [Unknown]

NARRATIVE: CASE EVENT DATE: 20190801
